FAERS Safety Report 24351891 (Version 1)
Quarter: 2024Q3

REPORT INFORMATION
  Report Type: Report from Study
  Country: CA (occurrence: CA)
  Receive Date: 20240923
  Receipt Date: 20240923
  Transmission Date: 20241017
  Serious: No
  Sender: ROCHE
  Company Number: CA-ROCHE-3563732

PATIENT
  Sex: Female
  Weight: 46.7 kg

DRUGS (6)
  1. HERCEPTIN [Suspect]
     Active Substance: TRASTUZUMAB
     Indication: Breast cancer
     Dosage: RECEIVED OUTSIDE RPAP, DETAILS NOT KNOWN
     Route: 065
  2. PERJETA [Suspect]
     Active Substance: PERTUZUMAB
     Indication: HER2 positive breast cancer
     Route: 042
     Dates: start: 20240515, end: 20240515
  3. CARBOPLATIN [Concomitant]
     Active Substance: CARBOPLATIN
  4. DOCETAXEL [Concomitant]
     Active Substance: DOCETAXEL\DOCETAXEL ANHYDROUS
  5. FILGRASTIM [Concomitant]
     Active Substance: FILGRASTIM
  6. MIRTAZAPINE [Concomitant]
     Active Substance: MIRTAZAPINE

REACTIONS (5)
  - Nausea [Unknown]
  - Gastrointestinal pain [Unknown]
  - Diarrhoea [Recovering/Resolving]
  - Malaise [Unknown]
  - Gastrointestinal toxicity [Unknown]
